FAERS Safety Report 4834296-9 (Version None)
Quarter: 2005Q4

REPORT INFORMATION
  Report Type: 
  Country: None (occurrence: None)
  Receive Date: 20051122
  Receipt Date: 20051114
  Transmission Date: 20060501
  Serious: Yes (Hospitalization, Other)
  Sender: FDA-Public Use
  Company Number: US-MERCK-0511USA02271

PATIENT
  Age: 71 Year
  Sex: Male
  Weight: 116 kg

DRUGS (4)
  1. VIOXX [Suspect]
     Indication: ARTHRITIS
     Route: 048
     Dates: start: 19990101, end: 20040101
  2. AMIODARONE HYDROCHLORIDE [Concomitant]
     Route: 065
  3. ASPIRIN [Concomitant]
     Route: 065
  4. MEXILETINE HYDROCHLORIDE [Concomitant]
     Route: 065

REACTIONS (5)
  - ARRHYTHMIA [None]
  - CARDIAC FAILURE CONGESTIVE [None]
  - DYSPNOEA [None]
  - LIMB INJURY [None]
  - MYOCARDIAL INFARCTION [None]
